FAERS Safety Report 21202613 (Version 2)
Quarter: 2022Q4

REPORT INFORMATION
  Report Type: Report from Study
  Country: US (occurrence: US)
  Receive Date: 20220811
  Receipt Date: 20221031
  Transmission Date: 20230112
  Serious: Yes (Death, Other)
  Sender: FDA-Public Use
  Company Number: US-ALLERGAN-2226338US

PATIENT
  Sex: Female
  Weight: 48.08 kg

DRUGS (4)
  1. MESALAMINE [Suspect]
     Active Substance: MESALAMINE
     Indication: Colitis ulcerative
     Dosage: AT BEDTIME
     Route: 054
     Dates: start: 20200317
  2. COVID-19 VACCINE [Concomitant]
     Indication: COVID-19 immunisation
     Dosage: UNK, SINGLE
     Route: 030
     Dates: start: 20210112, end: 20210112
  3. COVID-19 VACCINE [Concomitant]
     Dosage: UNK, SINGLE
     Route: 030
     Dates: start: 20210210, end: 20210210
  4. COVID-19 VACCINE [Concomitant]
     Dosage: UNK, SINGLE
     Route: 030
     Dates: start: 20211112, end: 20211112

REACTIONS (2)
  - Death [Fatal]
  - Off label use [Unknown]

NARRATIVE: CASE EVENT DATE: 20200317
